FAERS Safety Report 11239486 (Version 1)
Quarter: 2015Q3

REPORT INFORMATION
  Report Type: Spontaneous
  Country: GB (occurrence: None)
  Receive Date: 20150701
  Receipt Date: 20150701
  Transmission Date: 20151125
  Serious: Yes (Hospitalization)
  Sender: FDA-Public Use
  Company Number: CC400260631

PATIENT
  Age: 50 Year
  Sex: Female

DRUGS (4)
  1. SODIUM CHLORIDE 0.9% [Suspect]
     Active Substance: SODIUM CHLORIDE
     Indication: COMPUTERISED TOMOGRAM
     Route: 042
  2. BARIUM SULFATE [Concomitant]
     Active Substance: BARIUM SULFATE
  3. IOVERSOL [Concomitant]
     Active Substance: IOVERSOL
  4. GASTROGRAFIN [Concomitant]
     Active Substance: DIATRIZOATE MEGLUMINE\DIATRIZOATE SODIUM

REACTIONS (3)
  - Drug effect decreased [None]
  - Rash [None]
  - Pharyngeal oedema [None]
